FAERS Safety Report 5944530-X (Version None)
Quarter: 2008Q4

REPORT INFORMATION
  Report Type: 
  Country: None (occurrence: None)
  Receive Date: 20081107
  Receipt Date: 20081106
  Transmission Date: 20090506
  Serious: Yes (Hospitalization)
  Sender: FDA-Public Use
  Company Number: FR-BRISTOL-MYERS SQUIBB COMPANY-14397368

PATIENT
  Age: 70 Year
  Sex: Female

DRUGS (1)
  1. TAXOL [Suspect]

REACTIONS (3)
  - ALOPECIA [None]
  - ERYTHEMA MULTIFORME [None]
  - NEUROTOXICITY [None]
